FAERS Safety Report 11406662 (Version 1)
Quarter: 2015Q3

REPORT INFORMATION
  Report Type: Spontaneous
  Country: US (occurrence: US)
  Receive Date: 20150821
  Receipt Date: 20150821
  Transmission Date: 20151125
  Serious: No
  Sender: FDA-Public Use
  Company Number: US-ELI_LILLY_AND_COMPANY-US201508006210

PATIENT
  Age: 55 Year
  Sex: Female

DRUGS (2)
  1. FORTEO [Suspect]
     Active Substance: TERIPARATIDE
     Indication: OSTEOPOROSIS
     Dosage: UNK, QD
     Route: 065
     Dates: start: 201507
  2. PLAVIX [Concomitant]
     Active Substance: CLOPIDOGREL BISULFATE

REACTIONS (9)
  - Toothache [Recovering/Resolving]
  - Pain in jaw [Recovered/Resolved]
  - Malpositioned teeth [Not Recovered/Not Resolved]
  - Tooth loss [Not Recovered/Not Resolved]
  - Depressed mood [Not Recovered/Not Resolved]
  - Tongue biting [Recovering/Resolving]
  - Nausea [Not Recovered/Not Resolved]
  - Mouth injury [Recovering/Resolving]
  - Jaw disorder [Recovering/Resolving]

NARRATIVE: CASE EVENT DATE: 201508
